FAERS Safety Report 5943378-X (Version None)
Quarter: 2008Q4

REPORT INFORMATION
  Report Type: 
  Country: None (occurrence: None)
  Receive Date: 20081105
  Receipt Date: 20081105
  Transmission Date: 20090506
  Serious: Yes (Hospitalization)
  Sender: FDA-Public Use
  Company Number: None

PATIENT
  Age: 58 Year
  Sex: Male
  Weight: 125.7 kg

DRUGS (1)
  1. BENAZEPRIL HYDROCHLORIDE [Suspect]
     Indication: HYPERTENSION
     Dosage: 10 MG EVERY DAY PO
     Route: 048
     Dates: start: 20041217, end: 20081007

REACTIONS (9)
  - ANGIOEDEMA [None]
  - DRUG RESISTANCE [None]
  - DYSPNOEA [None]
  - INSOMNIA [None]
  - LIP SWELLING [None]
  - NASAL OEDEMA [None]
  - PYREXIA [None]
  - RHINALGIA [None]
  - WOUND INFECTION STAPHYLOCOCCAL [None]
